FAERS Safety Report 13360664 (Version 1)
Quarter: 2017Q1

REPORT INFORMATION
  Report Type: Spontaneous
  Country: US (occurrence: US)
  Receive Date: 20170322
  Receipt Date: 20170322
  Transmission Date: 20170429
  Serious: No
  Sender: FDA-Public Use
  Company Number: US-ACTELION-A-US2017-150808

PATIENT
  Age: 46 Year
  Sex: Female

DRUGS (6)
  1. ZAVESCA [Suspect]
     Active Substance: MIGLUSTAT
     Dosage: UNK
     Route: 048
     Dates: start: 2006
  2. TOPAMAX [Concomitant]
     Active Substance: TOPIRAMATE
     Dosage: 5 MG, UNK
  3. ZAVESCA [Suspect]
     Active Substance: MIGLUSTAT
     Indication: GAUCHER^S DISEASE TYPE I
     Dosage: 100 MG, TID
     Route: 048
     Dates: start: 201509
  4. VERAPAMIL [Concomitant]
     Active Substance: VERAPAMIL HYDROCHLORIDE
     Dosage: 80 MG, UNK
  5. HYOSCYAMINE. [Concomitant]
     Active Substance: HYOSCYAMINE
     Dosage: 0.65 UNK, UNK
     Route: 060
  6. PRILOSEC [Concomitant]
     Active Substance: OMEPRAZOLE MAGNESIUM
     Dosage: 40 MG, UNK

REACTIONS (4)
  - Pruritus [Not Recovered/Not Resolved]
  - Urticaria [Not Recovered/Not Resolved]
  - Blister [Not Recovered/Not Resolved]
  - Diarrhoea [Unknown]

NARRATIVE: CASE EVENT DATE: 2006
